FAERS Safety Report 5734000-6 (Version None)
Quarter: 2008Q2

REPORT INFORMATION
  Report Type: 
  Country: None (occurrence: None)
  Receive Date: 20080509
  Receipt Date: 20080502
  Transmission Date: 20081010
  Serious: Yes (Hospitalization)
  Sender: FDA-Public Use
  Company Number: US-ELI_LILLY_AND_COMPANY-US200805000666

PATIENT
  Sex: Female
  Weight: 95.238 kg

DRUGS (18)
  1. BYETTA [Suspect]
     Indication: TYPE 2 DIABETES MELLITUS
     Dosage: 5 UG, 2/D
     Route: 058
     Dates: start: 20060101, end: 20060101
  2. BYETTA [Suspect]
     Dosage: 10 UG, 2/D
     Route: 058
     Dates: start: 20060101
  3. METFORMIN HCL [Concomitant]
     Indication: TYPE 2 DIABETES MELLITUS
     Dosage: 1000 MG, 2/D
  4. BUMEX [Concomitant]
     Dosage: 1 MG, 2/D
     Route: 048
  5. PLAVIX [Concomitant]
     Dates: end: 20070101
  6. AGGRENOX [Concomitant]
     Indication: ANTICOAGULANT THERAPY
     Dosage: UNK, 2/D
     Route: 048
     Dates: start: 20070101
  7. TOPROL-XL [Concomitant]
     Indication: CARDIAC DISORDER
     Dosage: 100 MG, DAILY (1/D)
     Route: 048
  8. TRICOR [Concomitant]
     Indication: BLOOD CHOLESTEROL
     Dosage: 145 MG, UNK
     Route: 048
  9. AMITRIPTLINE HCL [Concomitant]
     Dosage: 50 MG, DAILY (1/D)
     Route: 048
  10. LEVOTHYROXINE SODIUM [Concomitant]
     Indication: HYPOTHYROIDISM
     Dosage: 0.075 MG, UNK
  11. TOPAMAX [Concomitant]
     Indication: WEIGHT DECREASED
     Dosage: 25 MG, 2/D
     Route: 048
  12. ACIPHEX [Concomitant]
     Dosage: 20 MG, DAILY (1/D)
     Route: 048
  13. SOMA [Concomitant]
     Indication: MUSCLE RELAXANT THERAPY
  14. RESTASIS [Concomitant]
     Indication: DRY EYE
     Route: 047
  15. PROPOXYPHENE NAPSYLATE W/ ACETAMINOPHEN [Concomitant]
     Indication: PAIN
     Dosage: UNK, AS NEEDED
  16. GLUCOSAMINE [Concomitant]
     Dosage: UNK, DAILY (1/D)
     Route: 048
  17. MULTI-VITAMIN [Concomitant]
     Dosage: UNK, DAILY (1/D)
     Route: 048
  18. HYPNOTICS AND SEDATIVES [Concomitant]
     Indication: INSOMNIA
     Dosage: UNK, AS NEEDED

REACTIONS (5)
  - ARTHRITIS [None]
  - CORONARY ARTERY OCCLUSION [None]
  - INTERVERTEBRAL DISC DISORDER [None]
  - PLATELET DISORDER [None]
  - RENAL FAILURE [None]
